FAERS Safety Report 5455323-4 (Version None)
Quarter: 2007Q3

REPORT INFORMATION
  Report Type: 
  Country: None (occurrence: None)
  Receive Date: 20070913
  Receipt Date: 20070913
  Transmission Date: 20080115
  Serious: No
  Sender: FDA-Public Use
  Company Number: None

PATIENT
  Age: 52 Year
  Sex: Male
  Weight: 96.1626 kg

DRUGS (4)
  1. CLARITIN [Suspect]
     Indication: NASAL CONGESTION
     Dosage: 1 TABLET 1 TIME PO
     Route: 048
     Dates: start: 20070911, end: 20070911
  2. CLARITIN [Suspect]
     Indication: RHINORRHOEA
     Dosage: 1 TABLET 1 TIME PO
     Route: 048
     Dates: start: 20070911, end: 20070911
  3. ROBITUSSIN DM LIQUID DON'T KNOW [Suspect]
     Indication: COUGH
     Dosage: 2 TSPS 1 TIME PO
     Route: 048
     Dates: start: 20070911, end: 20070911
  4. ROBITUSSIN DM LIQUID DON'T KNOW [Suspect]
     Indication: PHARYNGOLARYNGEAL PAIN
     Dosage: 2 TSPS 1 TIME PO
     Route: 048
     Dates: start: 20070911, end: 20070911

REACTIONS (3)
  - DISORIENTATION [None]
  - HALLUCINATIONS, MIXED [None]
  - INSOMNIA [None]
